FAERS Safety Report 5901775-2 (Version None)
Quarter: 2008Q3

REPORT INFORMATION
  Report Type: 
  Country: None (occurrence: None)
  Receive Date: 20080929
  Receipt Date: 20080925
  Transmission Date: 20090109
  Serious: Yes (Death, Other)
  Sender: FDA-Public Use
  Company Number: CL-BRISTOL-MYERS SQUIBB COMPANY-14334908

PATIENT
  Age: 36 Year
  Sex: Male

DRUGS (5)
  1. BRISTOL-VIDEX EC CAPS 400 MG [Suspect]
     Indication: HIV INFECTION
     Route: 048
     Dates: start: 20080306
  2. EFAVIRENZ [Suspect]
  3. FLUCONAZOLE [Suspect]
  4. LAMIVUDINE [Suspect]
  5. COTRIM [Suspect]
     Dosage: DF = TABS TAKEN ON MONDAY,WEDNESDAY AND FRIDAY.

REACTIONS (3)
  - METABOLIC ACIDOSIS [None]
  - PANCREATITIS [None]
  - SEPTIC SHOCK [None]
